FAERS Safety Report 4684216-5 (Version None)
Quarter: 2005Q2

REPORT INFORMATION
  Report Type: 
  Country: None (occurrence: None)
  Receive Date: 20050525
  Receipt Date: 20040416
  Transmission Date: 20051028
  Serious: Yes (Hospitalization)
  Sender: FDA-Public Use
  Company Number: 21-027-04-0007

PATIENT
  Sex: Male
  Weight: 56 kg

DRUGS (1)
  1. HECTOROL [Suspect]
     Indication: HYPERPARATHYROIDISM SECONDARY
     Dosage: 4 MCG; 3 X/WEEK; IV
     Route: 042

REACTIONS (3)
  - FATIGUE [None]
  - HYPERCALCAEMIA [None]
  - MENTAL STATUS CHANGES [None]
